FAERS Safety Report 9629442 (Version 2)
Quarter: 2013Q4

REPORT INFORMATION
  Report Type: Spontaneous
  Country: US (occurrence: US)
  Receive Date: 20131017
  Receipt Date: 20131017
  Transmission Date: 20140711
  Serious: Yes (Death, Hospitalization)
  Sender: FDA-Public Use
  Company Number: US-SA-POMP-1001717

PATIENT
  Age: 71 Year
  Sex: Male
  Weight: 155 kg

DRUGS (1)
  1. LUMIZYME [Suspect]
     Indication: GLYCOGEN STORAGE DISEASE TYPE II
     Dosage: 3100 MG, Q2W
     Route: 042
     Dates: start: 20100827

REACTIONS (2)
  - Cardiac arrest [Fatal]
  - Foreign body aspiration [Not Recovered/Not Resolved]
